FAERS Safety Report 16451985 (Version 1)
Quarter: 2019Q2

REPORT INFORMATION
  Report Type: Report from Study
  Country: MX (occurrence: MX)
  Receive Date: 20190619
  Receipt Date: 20190619
  Transmission Date: 20190711
  Serious: Yes (Other)
  Sender: FDA-Public Use
  Company Number: MX-BAYER-2019-116141

PATIENT
  Age: 67 Year
  Sex: Male

DRUGS (1)
  1. NEXAVAR [Suspect]
     Active Substance: SORAFENIB

REACTIONS (4)
  - Oral disorder [Not Recovered/Not Resolved]
  - Mouth haemorrhage [None]
  - Feeding disorder [None]
  - Oral pain [None]

NARRATIVE: CASE EVENT DATE: 20190611
